FAERS Safety Report 13737479 (Version 3)
Quarter: 2017Q4

REPORT INFORMATION
  Report Type: Spontaneous
  Country: JP (occurrence: JP)
  Receive Date: 20170710
  Receipt Date: 20171101
  Transmission Date: 20180320
  Serious: Yes (Hospitalization)
  Sender: FDA-Public Use
  Company Number: JP-BAYER-2017-127094

PATIENT
  Sex: Male
  Weight: 68 kg

DRUGS (5)
  1. BAYASPIRIN 100 MG [Suspect]
     Active Substance: ASPIRIN
     Indication: CORONARY ARTERIAL STENT INSERTION
  2. BAYASPIRIN 100 MG [Suspect]
     Active Substance: ASPIRIN
     Indication: THROMBOSIS PROPHYLAXIS
  3. HEPARIN [Suspect]
     Active Substance: HEPARIN SODIUM
     Dosage: UNK
  4. BAYASPIRIN 100 MG [Suspect]
     Active Substance: ASPIRIN
     Indication: MYOCARDIAL INFARCTION
     Dosage: 100 MG, QD
     Route: 048
  5. CLOPIDOGREL [Suspect]
     Active Substance: CLOPIDOGREL BISULFATE
     Dosage: UNK
     Route: 048

REACTIONS (8)
  - Stress [None]
  - Liver palpable [None]
  - Coagulopathy [Unknown]
  - Gastric ulcer [Recovered/Resolved]
  - Labelled drug-drug interaction medication error [None]
  - Abdominal pain upper [Recovered/Resolved]
  - Oesophagogastroduodenoscopy [None]
  - Abdominal tenderness [None]
